FAERS Safety Report 25968607 (Version 1)
Quarter: 2025Q4

REPORT INFORMATION
  Report Type: Spontaneous
  Country: CN (occurrence: CN)
  Receive Date: 20251028
  Receipt Date: 20251028
  Transmission Date: 20260118
  Serious: Yes (Other)
  Sender: QILU ANTIBIOTICS PHARMACEUTICAL
  Company Number: CN-QILU ANTIBIOTICS PHARMACEUTICAL CO. LTD-QLA-000119-2025

PATIENT
  Age: 33 Year
  Sex: Female

DRUGS (9)
  1. CEFTRIAXONE [Suspect]
     Active Substance: CEFTRIAXONE
     Indication: Enteritis
     Dosage: 2 G PER DAY
     Route: 042
  2. CEFTRIAXONE [Suspect]
     Active Substance: CEFTRIAXONE
     Indication: Pancreatitis
  3. CEFTRIAXONE [Suspect]
     Active Substance: CEFTRIAXONE
     Indication: Anticoagulant therapy
  4. SOMATOSTATIN [Concomitant]
     Active Substance: SOMATOSTATIN
     Indication: Enteritis
     Dosage: 3 TO 6 MG PER DAY
     Route: 065
  5. SOMATOSTATIN [Concomitant]
     Active Substance: SOMATOSTATIN
     Indication: Pancreatitis
  6. SOMATOSTATIN [Concomitant]
     Active Substance: SOMATOSTATIN
  7. ENOXAPARIN [Concomitant]
     Active Substance: ENOXAPARIN
     Indication: Enteritis
     Dosage: 0.4 ML TWICE DAILY
     Route: 058
  8. ENOXAPARIN [Concomitant]
     Active Substance: ENOXAPARIN
     Indication: Pancreatitis
  9. ENOXAPARIN [Concomitant]
     Active Substance: ENOXAPARIN

REACTIONS (3)
  - Cholecystitis acute [Recovered/Resolved]
  - Pseudocholelithiasis [Recovered/Resolved]
  - Off label use [Recovered/Resolved]
